FAERS Safety Report 10413121 (Version 5)
Quarter: 2014Q4

REPORT INFORMATION
  Report Type: Report from Study
  Country: US (occurrence: US)
  Receive Date: 20140827
  Receipt Date: 20141121
  Transmission Date: 20150528
  Serious: Yes (Hospitalization, Disabling, Other)
  Sender: FDA-Public Use
  Company Number: US-SA-2014SA084050

PATIENT
  Age: 48 Year
  Sex: Male

DRUGS (3)
  1. GABAPENTIN. [Concomitant]
     Active Substance: GABAPENTIN
     Indication: NEUROPATHY PERIPHERAL
  2. INSULIN [Concomitant]
     Active Substance: INSULIN NOS
  3. AUBAGIO [Suspect]
     Active Substance: TERIFLUNOMIDE
     Indication: MULTIPLE SCLEROSIS
     Route: 048
     Dates: start: 20140524, end: 20141001

REACTIONS (23)
  - Dysgraphia [Not Recovered/Not Resolved]
  - Grip strength decreased [Not Recovered/Not Resolved]
  - Multiple sclerosis [Unknown]
  - Multiple sclerosis relapse [Not Recovered/Not Resolved]
  - Dry eye [Unknown]
  - Fall [Not Recovered/Not Resolved]
  - Neuropathy peripheral [Unknown]
  - Hypoaesthesia [Not Recovered/Not Resolved]
  - Tremor [Not Recovered/Not Resolved]
  - Memory impairment [Unknown]
  - Road traffic accident [Unknown]
  - Abasia [Unknown]
  - Intervertebral disc protrusion [Unknown]
  - Laziness [Unknown]
  - Stomatitis [Unknown]
  - Mobility decreased [Unknown]
  - Back injury [Unknown]
  - Central nervous system lesion [Not Recovered/Not Resolved]
  - Stomatitis [Not Recovered/Not Resolved]
  - Eye disorder [Unknown]
  - Dry mouth [Unknown]
  - Eye irritation [Unknown]
  - Muscular weakness [Unknown]

NARRATIVE: CASE EVENT DATE: 20140906
